FAERS Safety Report 19168972 (Version 1)
Quarter: 2021Q2

REPORT INFORMATION
  Report Type: Spontaneous
  Country: US (occurrence: US)
  Receive Date: 20210422
  Receipt Date: 20210422
  Transmission Date: 20210717
  Serious: No
  Sender: FDA-Public Use
  Company Number: US-BRISTOL-MYERS SQUIBB COMPANY-BMS-2021-035184

PATIENT
  Age: 55 Year
  Sex: Female

DRUGS (2)
  1. OPDIVO [Suspect]
     Active Substance: NIVOLUMAB
     Indication: NEUROENDOCRINE CARCINOMA
     Dosage: 56 MILLIGRAM, Q3WK
     Route: 042
     Dates: start: 20210302, end: 2021
  2. YERVOY [Suspect]
     Active Substance: IPILIMUMAB
     Indication: NEUROENDOCRINE CARCINOMA
     Dosage: 168 MILLIGRAM, Q3WK
     Route: 042
     Dates: start: 20210302, end: 2021

REACTIONS (2)
  - Malaise [Unknown]
  - Intentional product use issue [Unknown]
